FAERS Safety Report 18617365 (Version 1)
Quarter: 2020Q4

REPORT INFORMATION
  Report Type: Spontaneous
  Country: US (occurrence: US)
  Receive Date: 20201214
  Receipt Date: 20201214
  Transmission Date: 20210114
  Serious: No
  Sender: FDA-Public Use
  Company Number: None

PATIENT
  Age: 35 Year
  Sex: Male
  Weight: 70 kg

DRUGS (2)
  1. REMDESIVIR. [Suspect]
     Active Substance: REMDESIVIR
     Dosage: 200 MG IV ON 8/19 AND 100 MG DAILY FROM 8/19 TO 8/26/2020
     Route: 042
     Dates: start: 20200819, end: 20200826
  2. TOCILIZUMAB. [Suspect]
     Active Substance: TOCILIZUMAB
     Indication: COVID-19
     Dosage: 580MG ON 8/19 AND 600MG ON 8/21/2020
     Route: 042
     Dates: start: 20200819, end: 20200821

REACTIONS (3)
  - Alanine aminotransferase increased [None]
  - Aspartate aminotransferase increased [None]
  - Intentional product use issue [None]

NARRATIVE: CASE EVENT DATE: 20200824
